FAERS Safety Report 16237963 (Version 1)
Quarter: 2019Q2

REPORT INFORMATION
  Report Type: Spontaneous
  Country: US (occurrence: US)
  Receive Date: 20190425
  Receipt Date: 20190425
  Transmission Date: 20190711
  Serious: Yes (Hospitalization)
  Sender: FDA-Public Use
  Company Number: US-JNJFOC-20190415792

PATIENT

DRUGS (1)
  1. XARELTO [Suspect]
     Active Substance: RIVAROXABAN
     Indication: PROTEIN S DEFICIENCY
     Route: 048
     Dates: start: 20160122

REACTIONS (6)
  - Internal haemorrhage [Unknown]
  - Off label use [Unknown]
  - Gastrointestinal haemorrhage [Unknown]
  - Contusion [Unknown]
  - Product use in unapproved indication [Unknown]
  - Rectal haemorrhage [Unknown]

NARRATIVE: CASE EVENT DATE: 2016
